FAERS Safety Report 23531660 (Version 1)
Quarter: 2024Q1

REPORT INFORMATION
  Report Type: Spontaneous
  Country: US (occurrence: None)
  Receive Date: 20240214
  Receipt Date: 20240214
  Transmission Date: 20240410
  Serious: Yes (Disabling, Other)
  Sender: FDA-Public Use
  Company Number: None

PATIENT
  Age: 63 Year
  Sex: Female
  Weight: 72.12 kg

DRUGS (5)
  1. PROLIA [Suspect]
     Active Substance: DENOSUMAB
     Indication: Osteoporosis
     Dosage: OTHER QUANTITY : 40 UNITS SHOT;?FREQUENCY : ONCE;?
     Route: 058
     Dates: start: 20231108, end: 20231108
  2. LISINOPRIL [Concomitant]
     Active Substance: LISINOPRIL
  3. ALPRAZOLAM [Concomitant]
     Active Substance: ALPRAZOLAM
  4. VITAMIN D3 [Concomitant]
     Active Substance: CHOLECALCIFEROL
  5. CALCIUM [Concomitant]
     Active Substance: CALCIUM

REACTIONS (4)
  - Hypoaesthesia [None]
  - Paraesthesia [None]
  - Hypertension [None]
  - Apraxia [None]

NARRATIVE: CASE EVENT DATE: 20231111
